FAERS Safety Report 11798912 (Version 1)
Quarter: 2015Q4

REPORT INFORMATION
  Report Type: Spontaneous
  Country: FR (occurrence: FR)
  Receive Date: 20151203
  Receipt Date: 20151203
  Transmission Date: 20160305
  Serious: Yes (Other)
  Sender: FDA-Public Use
  Company Number: FR-ASTRAZENECA-2015SF02281

PATIENT
  Age: 24344 Day
  Sex: Female

DRUGS (4)
  1. FASLODEX [Suspect]
     Active Substance: FULVESTRANT
     Indication: BREAST CANCER METASTATIC
     Dosage: ONE INJECTION OF 250 MG IN EACH BUTTOCK
     Route: 030
     Dates: start: 20150929, end: 20150929
  2. FASLODEX [Suspect]
     Active Substance: FULVESTRANT
     Indication: BREAST CANCER METASTATIC
     Route: 030
     Dates: start: 20151015, end: 20151115
  3. FASLODEX [Suspect]
     Active Substance: FULVESTRANT
     Indication: BREAST CANCER METASTATIC
     Dosage: 250 MG, ONE INJECTION IN EACH BUTTOCK
     Route: 030
     Dates: start: 20150915, end: 20150915
  4. XGEVA [Concomitant]
     Active Substance: DENOSUMAB
     Indication: METASTASES TO BONE
     Dates: start: 201504

REACTIONS (4)
  - Paraesthesia [Not Recovered/Not Resolved]
  - Neoplasm swelling [Not Recovered/Not Resolved]
  - Breast swelling [Not Recovered/Not Resolved]
  - Malignant neoplasm progression [Not Recovered/Not Resolved]

NARRATIVE: CASE EVENT DATE: 20150929
